FAERS Safety Report 7097071-3 (Version None)
Quarter: 2010Q4

REPORT INFORMATION
  Report Type: 
  Country: None (occurrence: None)
  Receive Date: 20101111
  Receipt Date: 20101102
  Transmission Date: 20110411
  Serious: Yes (Other)
  Sender: FDA-Public Use
  Company Number: GB-JNJFOC-20070806524

PATIENT
  Age: 56 Year
  Sex: Female

DRUGS (12)
  1. TRAMADOL HCL [Suspect]
     Indication: PROCEDURAL PAIN
     Route: 048
  2. CO-CODAMOL [Suspect]
     Indication: ARTHRALGIA
     Route: 048
  3. FLUOXETINE [Suspect]
     Indication: DEPRESSION
     Route: 048
  4. OXYCONTIN [Suspect]
     Indication: PROCEDURAL PAIN
     Route: 048
  5. OXYCONTIN [Suspect]
     Route: 048
  6. OXYCONTIN [Suspect]
     Route: 048
  7. AMLODIPINE [Concomitant]
     Route: 065
  8. BENDROFLUMETHIAZIDE [Concomitant]
     Route: 065
  9. DICLOFENAC SODIUM [Concomitant]
     Route: 065
  10. LANSOPRAZOLE [Concomitant]
     Route: 065
  11. RAMIPRIL [Concomitant]
     Route: 065
  12. SIMVASTATIN [Concomitant]
     Route: 065

REACTIONS (2)
  - HALLUCINATION [None]
  - MYOCLONUS [None]
